FAERS Safety Report 8288227 (Version 2)
Quarter: 2013Q3

REPORT INFORMATION
  Report Type: Spontaneous
  Country: US (occurrence: US)
  Receive Date: 20111213
  Receipt Date: 20130910
  Transmission Date: 20140515
  Serious: Yes (Hospitalization)
  Sender: FDA-Public Use
  Company Number: US-AMGEN-USASP2011053101

PATIENT
  Age: 54 Year
  Sex: Female
  Weight: 55.78 kg

DRUGS (13)
  1. ENBREL [Suspect]
     Indication: PSORIATIC ARTHROPATHY
     Dosage: 50 MG, QWK
     Route: 058
  2. ENBREL [Suspect]
     Indication: RHEUMATOID ARTHRITIS
  3. ENBREL [Suspect]
     Indication: OSTEOARTHRITIS
  4. NORCO [Concomitant]
     Dosage: 5-325 MG, UNK
  5. PROZAC [Concomitant]
     Dosage: 10 MG, UNK
  6. FLORINEF [Concomitant]
     Dosage: 0.1 MG, UNK
  7. FOLIC ACID [Concomitant]
     Dosage: UNK
  8. PREDNISONE [Concomitant]
     Dosage: 5 MG, UNK
  9. METHOTREXATE [Concomitant]
     Dosage: 2.5 MG, UNK
  10. SYNTHROID [Concomitant]
     Dosage: 50 MUG, UNK
  11. VITAMIN D                          /00107901/ [Concomitant]
     Dosage: 1000 UNIT, UNK
  12. ADDERALL [Concomitant]
     Dosage: 20 MG, UNK
  13. FLUTICASONE [Concomitant]
     Dosage: 50 MUG, UNK

REACTIONS (5)
  - Meningitis [Unknown]
  - Lyme disease [Unknown]
  - Pneumonia [Unknown]
  - Synovial cyst [Unknown]
  - Addison^s disease [Not Recovered/Not Resolved]
